FAERS Safety Report 8919107 (Version 2)
Quarter: 2013Q2

REPORT INFORMATION
  Report Type: Spontaneous
  Country: GB (occurrence: None)
  Receive Date: 20121114
  Receipt Date: 20130524
  Transmission Date: 20140414
  Serious: Yes (Other)
  Sender: FDA-Public Use
  Company Number: 2012279488

PATIENT
  Sex: Female

DRUGS (2)
  1. FRAGMIN (DALTEPARIN SODIUM) SOLUTION FOR INJECTION [Suspect]
  2. EVEROLIMUS [Concomitant]

REACTIONS (2)
  - Cellulitis [None]
  - Blister [None]
